FAERS Safety Report 12317696 (Version 1)
Quarter: 2016Q2

REPORT INFORMATION
  Report Type: Spontaneous
  Country: PT (occurrence: PT)
  Receive Date: 20160429
  Receipt Date: 20160429
  Transmission Date: 20160815
  Serious: Yes (Disabling)
  Sender: FDA-Public Use
  Company Number: PT-TEVA-654171ISR

PATIENT
  Age: 48 Year
  Sex: Female

DRUGS (2)
  1. SINVASTATINA TEVA [Suspect]
     Active Substance: SIMVASTATIN
     Indication: BLOOD CHOLESTEROL INCREASED
     Dosage: 20 MILLIGRAM DAILY;
     Route: 048
     Dates: start: 201504, end: 20160412
  2. INDERAL [Concomitant]
     Active Substance: PROPRANOLOL HYDROCHLORIDE
     Route: 048

REACTIONS (3)
  - Asthenia [Unknown]
  - Feeling cold [Unknown]
  - Arthralgia [Unknown]

NARRATIVE: CASE EVENT DATE: 201504
